FAERS Safety Report 7493084-8 (Version None)
Quarter: 2011Q2

REPORT INFORMATION
  Report Type: 
  Country: None (occurrence: None)
  Receive Date: 20110520
  Receipt Date: 20110517
  Transmission Date: 20111010
  Serious: No
  Sender: FDA-Public Use
  Company Number: US-PFIZER INC-2011106562

PATIENT
  Sex: Female

DRUGS (3)
  1. NEURONTIN [Suspect]
     Indication: ARTHRALGIA
     Dosage: 300 MG, DAILY
  2. NEURONTIN [Suspect]
  3. NEURONTIN [Suspect]
     Indication: PAIN IN EXTREMITY

REACTIONS (2)
  - VISION BLURRED [None]
  - DIZZINESS [None]
